FAERS Safety Report 13441594 (Version 4)
Quarter: 2017Q2

REPORT INFORMATION
  Report Type: Spontaneous
  Country: CA (occurrence: CA)
  Receive Date: 20170414
  Receipt Date: 20170531
  Transmission Date: 20170830
  Serious: Yes (Other)
  Sender: FDA-Public Use
  Company Number: CA-ROCHE-1918267

PATIENT
  Sex: Female

DRUGS (1)
  1. KADCYLA [Suspect]
     Active Substance: ADO-TRASTUZUMAB EMTANSINE
     Indication: LIVER DISORDER
     Dosage: 3.5 MG/KG EVERY 3 WEEKS
     Route: 065
     Dates: start: 20161003, end: 20170320

REACTIONS (6)
  - Optic neuritis [Unknown]
  - Thrombocytopenia [Unknown]
  - Blood bilirubin increased [Not Recovered/Not Resolved]
  - Aspartate aminotransferase increased [Unknown]
  - Alanine aminotransferase increased [Unknown]
  - Optic neuropathy [Unknown]
